FAERS Safety Report 9299396 (Version 2)
Quarter: 2013Q4

REPORT INFORMATION
  Report Type: Spontaneous
  Country: US (occurrence: US)
  Receive Date: 20130520
  Receipt Date: 20131108
  Transmission Date: 20140711
  Serious: Yes (Hospitalization)
  Sender: FDA-Public Use
  Company Number: US-B.I. PHARMACEUTICALS,INC./RIDGEFIELD-2013-BI-13944BP

PATIENT
  Age: 84 Year
  Sex: Female
  Weight: 80.74 kg

DRUGS (20)
  1. PRADAXA [Suspect]
     Indication: ANTICOAGULANT THERAPY
     Dosage: 150 MG
     Route: 048
     Dates: start: 20101216, end: 20120501
  2. PRADAXA [Suspect]
     Indication: ATRIAL FIBRILLATION
  3. SYNTHROID [Concomitant]
     Dosage: 75 MCG
     Dates: start: 20100304, end: 20120510
  4. PRAVACHOL [Concomitant]
     Dosage: 40 MG
     Dates: start: 20101213, end: 20120713
  5. PREDNISONE [Concomitant]
     Dosage: 5 MG
  6. LASIX [Concomitant]
     Dosage: 20 MG
     Dates: start: 20100225, end: 20120706
  7. SYMBICORT [Concomitant]
  8. ACCUPRIL [Concomitant]
     Dosage: 40 MG
     Dates: start: 20100526, end: 20120706
  9. FERROUS SULFATE [Concomitant]
     Dosage: 650 MG
  10. MULTAQ [Concomitant]
     Dosage: 800 MG
     Dates: start: 20110412, end: 20120621
  11. ALBUTEROL [Concomitant]
     Indication: DYSPNOEA
  12. ALLOPURINOL [Concomitant]
     Route: 048
  13. MULTIVITAMIN [Concomitant]
  14. OS-CAL PLUS VITAMIN D [Concomitant]
     Route: 048
  15. PREVACID [Concomitant]
     Dosage: 30 MG
     Route: 048
  16. NORVASC [Concomitant]
     Dates: start: 20100225, end: 20120626
  17. FEXOFENADINE [Concomitant]
  18. CENTRUM SILVER [Concomitant]
  19. POTASSIUM CHLORIDE [Concomitant]
  20. TYLENOL [Concomitant]

REACTIONS (2)
  - Lower gastrointestinal haemorrhage [Unknown]
  - Haemorrhagic anaemia [Unknown]
